FAERS Safety Report 6742470-X (Version None)
Quarter: 2010Q2

REPORT INFORMATION
  Report Type: 
  Country: None (occurrence: None)
  Receive Date: 20100526
  Receipt Date: 20100513
  Transmission Date: 20101027
  Serious: Yes (Death, Hospitalization)
  Sender: FDA-Public Use
  Company Number: DE-PFIZER INC-2010052756

PATIENT
  Age: 87 Year
  Sex: Male

DRUGS (11)
  1. DETRUSITOL [Suspect]
     Indication: INCONTINENCE
     Dosage: 2 MG, 1X/DAY
     Route: 048
     Dates: start: 20080727
  2. IBUPROFEN [Suspect]
     Dosage: 600 MG, UNK
     Route: 048
     Dates: start: 20080727
  3. CYNT [Suspect]
     Indication: CARDIAC FAILURE
     Dosage: 0.3 MG, UNK
     Route: 048
     Dates: start: 20080728
  4. TORASEMIDE [Suspect]
     Indication: HYPERTENSION
     Dosage: 10 MG, 1X/DAY
     Route: 048
     Dates: start: 20070101
  5. NOVODIGAL [Suspect]
     Indication: CARDIAC FAILURE
     Dosage: 0.2 MG, 1X/DAY
     Route: 048
     Dates: start: 20080727
  6. ALLOPURINOL [Suspect]
     Indication: HYPERURICAEMIA
     Dosage: 300 MG, 1X/DAY
     Route: 048
     Dates: start: 20080724
  7. ASPIRIN [Suspect]
     Indication: THROMBOSIS PROPHYLAXIS
     Dosage: 100 MG, UNK
     Route: 048
     Dates: start: 20080727
  8. FOLIC ACID [Suspect]
     Indication: SUPPLEMENTATION THERAPY
     Dosage: UNK
     Route: 048
     Dates: start: 20080727
  9. DEXA POLYSPECTRAN N [Suspect]
     Indication: CONJUNCTIVITIS
     Dosage: UNK
     Route: 047
     Dates: start: 20080724
  10. BETAISODONA [Suspect]
     Dosage: UNK
     Route: 061
     Dates: start: 20080728
  11. FERROUS GLUCONATE [Suspect]

REACTIONS (1)
  - STEVENS-JOHNSON SYNDROME [None]
